FAERS Safety Report 9526577 (Version 4)
Quarter: 2014Q1

REPORT INFORMATION
  Report Type: Report from Study
  Country: US (occurrence: US)
  Receive Date: 20130916
  Receipt Date: 20140121
  Transmission Date: 20141002
  Serious: Yes (Other)
  Sender: FDA-Public Use
  Company Number: US-TEVA-431909USA

PATIENT
  Sex: Female

DRUGS (2)
  1. CLARAVIS [Suspect]
     Dosage: TOTAL OF 3 CAPSULES TAKEN
     Route: 048
     Dates: start: 20120626, end: 20130716
  2. BIRTH CONTROL PILLS [Concomitant]

REACTIONS (1)
  - Pregnancy [Unknown]
